FAERS Safety Report 4348457-9 (Version None)
Quarter: 2004Q2

REPORT INFORMATION
  Report Type: 
  Country: None (occurrence: None)
  Receive Date: 20040422
  Receipt Date: 20040405
  Transmission Date: 20050107
  Serious: Yes (Hospitalization)
  Sender: FDA-Public Use
  Company Number: GBS040214401

PATIENT
  Age: 50 Year
  Sex: Female
  Weight: 64 kg

DRUGS (1)
  1. FORTEO [Suspect]
     Indication: OSTEOPOROSIS
     Dosage: 20 UG/DAY
     Dates: start: 20040127

REACTIONS (3)
  - CEREBRAL HAEMORRHAGE [None]
  - INFLUENZA LIKE ILLNESS [None]
  - PROCEDURAL COMPLICATION [None]
